FAERS Safety Report 18637486 (Version 1)
Quarter: 2020Q4

REPORT INFORMATION
  Report Type: Report from Study
  Country: BR (occurrence: BR)
  Receive Date: 20201218
  Receipt Date: 20201218
  Transmission Date: 20210114
  Serious: Yes (Other)
  Sender: FDA-Public Use
  Company Number: NVSC2020BR332778

PATIENT
  Sex: Female

DRUGS (2)
  1. GILENYA [Suspect]
     Active Substance: FINGOLIMOD HYDROCHLORIDE
     Dosage: UNK, (SATURDAY AND SUNDAY BREAK)
     Route: 065
     Dates: end: 20201030
  2. GILENYA [Suspect]
     Active Substance: FINGOLIMOD HYDROCHLORIDE
     Indication: MULTIPLE SCLEROSIS
     Dosage: UNK, (AROUND 20 JUL)
     Route: 065

REACTIONS (19)
  - Visual impairment [Not Recovered/Not Resolved]
  - Lymphocyte count decreased [Recovering/Resolving]
  - Sinusitis [Unknown]
  - Headache [Unknown]
  - Infection [Not Recovered/Not Resolved]
  - Nausea [Recovered/Resolved]
  - Multiple sclerosis [Unknown]
  - Skin lesion [Not Recovered/Not Resolved]
  - Urinary tract infection [Recovered/Resolved]
  - Nausea [Unknown]
  - Injury [Unknown]
  - Retching [Recovered/Resolved]
  - Vomiting [Recovered/Resolved]
  - Therapeutic product effect decreased [Unknown]
  - Limb discomfort [Unknown]
  - Abdominal pain upper [Unknown]
  - Bone lesion [Unknown]
  - Urinary tract infection [Unknown]
  - Product prescribing error [Unknown]
